FAERS Safety Report 16248176 (Version 1)
Quarter: 2019Q2

REPORT INFORMATION
  Report Type: Spontaneous
  Country: US (occurrence: US)
  Receive Date: 20190428
  Receipt Date: 20190428
  Transmission Date: 20190711
  Serious: No
  Sender: FDA-Public Use
  Company Number: US-SENTYNL THERAPEUTICS, INC.  -2066334

PATIENT
  Age: 51 Year
  Sex: Female

DRUGS (17)
  1. MVI - VITAMINS NOS?WHO DRUG CODE 075041.01.079?WHO MEDICINAL PRODUCT I [Concomitant]
  2. CARBIDOPA AND LEVODOPA [Concomitant]
     Active Substance: CARBIDOPA\LEVODOPA
  3. SPIRONOLACTONE. [Concomitant]
     Active Substance: SPIRONOLACTONE
  4. SYNTHROID [Concomitant]
     Active Substance: LEVOTHYROXINE SODIUM
  5. LEVORPHANOL TARTRATE. [Suspect]
     Active Substance: LEVORPHANOL TARTRATE
     Indication: OSTEOARTHRITIS
     Route: 048
     Dates: start: 20161031, end: 201803
  6. COLACE [Concomitant]
     Active Substance: DOCUSATE SODIUM
  7. FLEXERIL [Concomitant]
     Active Substance: CYCLOBENZAPRINE HYDROCHLORIDE
  8. GABAPENTIN. [Concomitant]
     Active Substance: GABAPENTIN
  9. COLCRYS [Concomitant]
     Active Substance: COLCHICINE
  10. NABUMETONE. [Concomitant]
     Active Substance: NABUMETONE
  11. SERTRALINE [Concomitant]
     Active Substance: SERTRALINE HYDROCHLORIDE
  12. SINGULAIR [Concomitant]
     Active Substance: MONTELUKAST SODIUM
  13. VERAPAMIL [Concomitant]
     Active Substance: VERAPAMIL HYDROCHLORIDE
  14. KLONOPIN [Concomitant]
     Active Substance: CLONAZEPAM
  15. FUROSEMIDE. [Concomitant]
     Active Substance: FUROSEMIDE
  16. ZYRTEC [Concomitant]
     Active Substance: CETIRIZINE HYDROCHLORIDE
  17. TRILEPTAL [Concomitant]
     Active Substance: OXCARBAZEPINE

REACTIONS (6)
  - Hyperhidrosis [Not Recovered/Not Resolved]
  - Blister [Unknown]
  - Pruritus [Not Recovered/Not Resolved]
  - Asthenia [Not Recovered/Not Resolved]
  - Intentional product use issue [Unknown]
  - Anxiety [Not Recovered/Not Resolved]
